FAERS Safety Report 7402524-1 (Version None)
Quarter: 2011Q2

REPORT INFORMATION
  Report Type: 
  Country: None (occurrence: None)
  Receive Date: 20110408
  Receipt Date: 20110406
  Transmission Date: 20111010
  Serious: Yes (Death)
  Sender: FDA-Public Use
  Company Number: PHHO2011FR02851

PATIENT
  Sex: Female
  Weight: 58 kg

DRUGS (6)
  1. STI571/CGP57148B [Suspect]
     Indication: ACUTE LYMPHOCYTIC LEUKAEMIA
     Dosage: UNK
     Route: 048
     Dates: start: 20090810
  2. CORTANCYL [Concomitant]
  3. LEXOMIL [Concomitant]
  4. ZELITREX [Concomitant]
  5. ESOMEPRAZOLE [Concomitant]
  6. STILNOX [Concomitant]

REACTIONS (4)
  - PYREXIA [None]
  - ESCHERICHIA INFECTION [None]
  - SEPTIC SHOCK [None]
  - NEOPLASM MALIGNANT [None]
